FAERS Safety Report 9789060 (Version 1)
Quarter: 2013Q4

REPORT INFORMATION
  Report Type: Spontaneous
  Country: US (occurrence: US)
  Receive Date: 20131230
  Receipt Date: 20131230
  Transmission Date: 20140711
  Serious: No
  Sender: FDA-Public Use
  Company Number: US-ASTRAZENECA-2013SE84956

PATIENT
  Age: 57 Year
  Sex: Male

DRUGS (6)
  1. BRILINTA [Suspect]
     Indication: ACUTE CORONARY SYNDROME
     Dosage: 2-90MG ONCE
     Route: 048
     Dates: start: 20131112, end: 20131112
  2. BRILINTA [Suspect]
     Indication: STENT PLACEMENT
     Dosage: 2-90MG ONCE
     Route: 048
     Dates: start: 20131112, end: 20131112
  3. BRILINTA [Suspect]
     Indication: ACUTE CORONARY SYNDROME
     Route: 048
     Dates: start: 201311, end: 20131115
  4. BRILINTA [Suspect]
     Indication: STENT PLACEMENT
     Route: 048
     Dates: start: 201311, end: 20131115
  5. ASPIRIN [Concomitant]
     Indication: ACUTE CORONARY SYNDROME
     Dates: start: 201311
  6. UNSPECIFIED BETA BLOCKER [Concomitant]

REACTIONS (2)
  - Respiratory rate increased [Unknown]
  - Dyspnoea [Unknown]
